FAERS Safety Report 17299131 (Version 1)
Quarter: 2020Q1

REPORT INFORMATION
  Report Type: Spontaneous
  Country: US (occurrence: US)
  Receive Date: 20200121
  Receipt Date: 20200121
  Transmission Date: 20200409
  Serious: No
  Sender: FDA-Public Use
  Company Number: US-CUMBERLAND-2020-US-000003

PATIENT
  Sex: Female

DRUGS (1)
  1. KRISTALOSE [Suspect]
     Active Substance: LACTULOSE

REACTIONS (2)
  - Dysgeusia [Unknown]
  - Drug ineffective [Unknown]
